FAERS Safety Report 16885057 (Version 3)
Quarter: 2019Q4

REPORT INFORMATION
  Report Type: Spontaneous
  Country: US (occurrence: US)
  Receive Date: 20191004
  Receipt Date: 20191011
  Transmission Date: 20200122
  Serious: No
  Sender: FDA-Public Use
  Company Number: US-PFIZER INC-2019427559

PATIENT
  Age: 49 Year
  Sex: Male

DRUGS (1)
  1. LYRICA [Suspect]
     Active Substance: PREGABALIN
     Indication: FIBROMYALGIA
     Dosage: UNK

REACTIONS (9)
  - Hallucination [Unknown]
  - Euphoric mood [Unknown]
  - Feeling of body temperature change [Unknown]
  - Inappropriate affect [Unknown]
  - Memory impairment [Unknown]
  - Weight decreased [Unknown]
  - Hyperhidrosis [Unknown]
  - Gait inability [Unknown]
  - Loss of personal independence in daily activities [Unknown]
